FAERS Safety Report 15347590 (Version 1)
Quarter: 2018Q3

REPORT INFORMATION
  Report Type: Spontaneous
  Country: US (occurrence: US)
  Receive Date: 20180904
  Receipt Date: 20180904
  Transmission Date: 20181010
  Serious: Yes (Hospitalization, Other)
  Sender: FDA-Public Use
  Company Number: US-PFIZER INC-2018353815

PATIENT
  Age: 64 Year
  Sex: Female
  Weight: 81 kg

DRUGS (1)
  1. LYRICA [Suspect]
     Active Substance: PREGABALIN
     Indication: DIABETIC NEUROPATHY
     Dosage: 150 MG, 2X/DAY
     Route: 048
     Dates: start: 201807

REACTIONS (4)
  - Diabetes mellitus [Recovered/Resolved]
  - Neuropathy peripheral [Recovered/Resolved]
  - Hypertension [Recovered/Resolved]
  - Off label use [Unknown]

NARRATIVE: CASE EVENT DATE: 201807
